FAERS Safety Report 6390786-1 (Version None)
Quarter: 2009Q4

REPORT INFORMATION
  Report Type: 
  Country: None (occurrence: None)
  Receive Date: 20091006
  Receipt Date: 20091002
  Transmission Date: 20100525
  Serious: Yes (Hospitalization)
  Sender: FDA-Public Use
  Company Number: AT-WYE-G04549909

PATIENT
  Age: 42 Year
  Sex: Female
  Weight: 60 kg

DRUGS (11)
  1. EFFEXOR XR [Suspect]
     Indication: SUICIDAL IDEATION
  2. EFFEXOR XR [Suspect]
     Indication: PERSONALITY DISORDER
  3. EFFEXOR XR [Suspect]
     Indication: DEPRESSION
  4. LAMICTAL [Concomitant]
  5. NOZINAN [Suspect]
     Dates: start: 20090516, end: 20090516
  6. RISPERDAL [Suspect]
     Dates: start: 20090414, end: 20090521
  7. TEMESTA [Suspect]
     Dates: start: 20090408
  8. CITALOPRAM [Concomitant]
     Indication: PERSONALITY DISORDER
  9. CITALOPRAM [Concomitant]
     Indication: DEPRESSION
  10. CITALOPRAM [Concomitant]
     Indication: SUICIDAL IDEATION
  11. SEROQUEL [Suspect]
     Dates: start: 20090505, end: 20090528

REACTIONS (1)
  - ILEUS PARALYTIC [None]
